FAERS Safety Report 23489397 (Version 1)
Quarter: 2024Q1

REPORT INFORMATION
  Report Type: Spontaneous
  Country: US (occurrence: None)
  Receive Date: 20240206
  Receipt Date: 20240206
  Transmission Date: 20240410
  Serious: No
  Sender: FDA-Public Use
  Company Number: US-ROCHE-3257196

PATIENT
  Sex: Male

DRUGS (1)
  1. XOLAIR [Suspect]
     Active Substance: OMALIZUMAB
     Indication: Product used for unknown indication
     Route: 058
     Dates: start: 20221227, end: 20221227

REACTIONS (3)
  - Migraine [Unknown]
  - Back pain [Unknown]
  - Spinal pain [Unknown]

NARRATIVE: CASE EVENT DATE: 20221227
